FAERS Safety Report 19317153 (Version 2)
Quarter: 2021Q2

REPORT INFORMATION
  Report Type: Spontaneous
  Country: US (occurrence: US)
  Receive Date: 20210527
  Receipt Date: 20210531
  Transmission Date: 20210717
  Serious: Yes (Other)
  Sender: FDA-Public Use
  Company Number: US-ROCHE-2838334

PATIENT
  Sex: Female

DRUGS (9)
  1. XOLAIR [Suspect]
     Active Substance: OMALIZUMAB
     Indication: ASTHMA
     Dosage: SD PFS 75 MG/0.5ML
     Route: 058
     Dates: start: 20210120
  2. XOLAIR [Suspect]
     Active Substance: OMALIZUMAB
  3. XOLAIR [Suspect]
     Active Substance: OMALIZUMAB
  4. XOLAIR [Suspect]
     Active Substance: OMALIZUMAB
     Dosage: SD PFS 150 MG/ML
     Route: 058
     Dates: start: 20210120
  5. XOLAIR [Suspect]
     Active Substance: OMALIZUMAB
     Dosage: 75 MG/0.5 ML PFS
     Route: 058
     Dates: start: 20210114
  6. XOLAIR [Suspect]
     Active Substance: OMALIZUMAB
  7. XOLAIR [Suspect]
     Active Substance: OMALIZUMAB
  8. XOLAIR [Suspect]
     Active Substance: OMALIZUMAB
  9. XOLAIR [Suspect]
     Active Substance: OMALIZUMAB

REACTIONS (3)
  - Gastritis [Unknown]
  - Oesophagitis ulcerative [Unknown]
  - Hiatus hernia [Unknown]
